FAERS Safety Report 7688879-1 (Version None)
Quarter: 2011Q3

REPORT INFORMATION
  Report Type: 
  Country: None (occurrence: None)
  Receive Date: 20110817
  Receipt Date: 20110804
  Transmission Date: 20111222
  Serious: Yes (Other)
  Sender: FDA-Public Use
  Company Number: PHHY2011CA52743

PATIENT
  Sex: Female

DRUGS (2)
  1. SANDOSTATIN LAR [Suspect]
     Indication: NEUROENDOCRINE CARCINOMA
     Dosage: 20 MG, EVERY 4 WEEKS
     Route: 030
     Dates: start: 20110502
  2. SANDOSTATIN LAR [Suspect]
     Dosage: 30 MG,EVERY 4 WEEKS
     Route: 030

REACTIONS (9)
  - BLOOD CALCIUM DECREASED [None]
  - OEDEMA PERIPHERAL [None]
  - DEHYDRATION [None]
  - HAEMOGLOBIN DECREASED [None]
  - MALNUTRITION [None]
  - ALOPECIA [None]
  - DIARRHOEA [None]
  - DIZZINESS [None]
  - FATIGUE [None]
